FAERS Safety Report 5740388-2 (Version None)
Quarter: 2008Q2

REPORT INFORMATION
  Report Type: 
  Country: None (occurrence: None)
  Receive Date: 20080516
  Receipt Date: 20080514
  Transmission Date: 20081010
  Serious: Yes (Death)
  Sender: FDA-Public Use
  Company Number: FR-ASTRAZENECA-2008CG00693

PATIENT
  Age: 54 Year
  Sex: Male

DRUGS (5)
  1. SYMBICORT [Suspect]
     Indication: BRONCHITIS
     Dosage: 160/4.5 UG ONE PUFF BID
     Route: 055
     Dates: start: 20080101, end: 20080101
  2. SYMBICORT [Suspect]
     Indication: SINUSITIS
     Dosage: 160/4.5 UG ONE PUFF BID
     Route: 055
     Dates: start: 20080101, end: 20080101
  3. PYOSTACINE [Concomitant]
     Indication: BRONCHITIS
     Route: 048
     Dates: start: 20080101
  4. PYOSTACINE [Concomitant]
     Indication: SINUSITIS
     Route: 048
     Dates: start: 20080101
  5. LEVOTHYROXINE SODIUM [Concomitant]
     Indication: HYPOTHYROIDISM
     Route: 048

REACTIONS (1)
  - SUDDEN DEATH [None]
